FAERS Safety Report 8917016 (Version 1)
Quarter: 2012Q4

REPORT INFORMATION
  Report Type: 
  Country: US (occurrence: US)
  Receive Date: 20121120
  Receipt Date: 20121120
  Transmission Date: 20130627
  Serious: No
  Sender: FDA-Public Use
  Company Number: US-009507513-1211USA005013

PATIENT
  Age: 70 Year
  Sex: Female

DRUGS (4)
  1. DULERA [Suspect]
     Route: 055
  2. PROVENTIL [Concomitant]
     Route: 055
  3. OMEPRAZOLE [Concomitant]
  4. ZANTAC [Concomitant]

REACTIONS (1)
  - Asthenia [Unknown]
